FAERS Safety Report 11457890 (Version 1)
Quarter: 2015Q3

REPORT INFORMATION
  Report Type: Spontaneous
  Country: FR (occurrence: FR)
  Receive Date: 20150904
  Receipt Date: 20150904
  Transmission Date: 20151125
  Serious: Yes (Hospitalization)
  Sender: FDA-Public Use
  Company Number: FR-ROCHE-1629194

PATIENT
  Age: 63 Year
  Sex: Female

DRUGS (2)
  1. TAXOTERE [Suspect]
     Active Substance: DOCETAXEL
     Indication: BREAST CANCER
     Dosage: DAY 1 CYCLE 1.
     Route: 065
     Dates: start: 20150604
  2. HERCEPTIN [Suspect]
     Active Substance: TRASTUZUMAB
     Indication: BREAST CANCER
     Dosage: DAY 1 CYCLE 1.
     Route: 041
     Dates: start: 20150604

REACTIONS (1)
  - Administration site extravasation [Recovered/Resolved with Sequelae]

NARRATIVE: CASE EVENT DATE: 20150604
